FAERS Safety Report 5446583-4 (Version None)
Quarter: 2007Q3

REPORT INFORMATION
  Report Type: 
  Country: None (occurrence: None)
  Receive Date: 20070907
  Receipt Date: 20070830
  Transmission Date: 20080115
  Serious: Yes (Life-Threatening, Hospitalization, Other)
  Sender: FDA-Public Use
  Company Number: US-PURDUE-USA_2007_0028974

PATIENT
  Age: 38 Year
  Sex: Male

DRUGS (3)
  1. OXYCONTIN [Suspect]
     Indication: DRUG ABUSER
  2. METHAMPHETAMINE HYDROCHLORIDE [Suspect]
     Indication: DRUG ABUSER
  3. ALCOHOL [Suspect]
     Indication: ALCOHOLISM

REACTIONS (3)
  - INTENTIONAL OVERDOSE [None]
  - SUBSTANCE ABUSE [None]
  - SUICIDE ATTEMPT [None]
